FAERS Safety Report 6976054-5 (Version None)
Quarter: 2010Q3

REPORT INFORMATION
  Report Type: 
  Country: None (occurrence: None)
  Receive Date: 20100910
  Receipt Date: 20100831
  Transmission Date: 20110219
  Serious: Yes (Hospitalization)
  Sender: FDA-Public Use
  Company Number: FR-PFIZER INC-2010109249

PATIENT
  Age: 59 Year
  Sex: Female

DRUGS (10)
  1. FARMORUBICINE [Suspect]
     Indication: HEPATIC NEOPLASM MALIGNANT
     Dosage: 100 MG, SINGLE
     Route: 025
     Dates: start: 20100526, end: 20100526
  2. PROPRANOLOL [Suspect]
     Indication: PORTAL HYPERTENSION
     Dosage: 160 MG, 1X/DAY
     Route: 048
     Dates: end: 20100529
  3. PROPRANOLOL [Suspect]
     Indication: VARICES OESOPHAGEAL
  4. SUCRALFATE [Concomitant]
     Indication: PORTAL HYPERTENSION
  5. SUCRALFATE [Concomitant]
     Indication: VARICES OESOPHAGEAL
  6. ALDACTONE [Concomitant]
  7. LASIX [Concomitant]
  8. DIAMICRON [Concomitant]
  9. ACTOS [Concomitant]
  10. DIFFU K [Concomitant]

REACTIONS (1)
  - TORSADE DE POINTES [None]
